FAERS Safety Report 8877144 (Version 3)
Quarter: 2012Q4

REPORT INFORMATION
  Report Type: 
  Country: IL (occurrence: IL)
  Receive Date: 20121030
  Receipt Date: 20121108
  Transmission Date: 20130627
  Serious: Yes (Life-Threatening, Hospitalization)
  Sender: FDA-Public Use
  Company Number: IL-B.I. PHARMACEUTICALS,INC./RIDGEFIELD-2012-AP-00918RI

PATIENT
  Age: 75 Year
  Sex: Female

DRUGS (12)
  1. PRADAXA [Suspect]
     Dosage: 220 mg
     Route: 048
     Dates: start: 201111
  2. SILDENAFIL CITRATE [Concomitant]
     Dosage: 60 mg
     Route: 048
  3. BISOPROLOL FURMATE [Concomitant]
     Dosage: 5 mg
     Route: 048
  4. SPIRONOLACTONE [Concomitant]
     Dosage: 50 mg
     Route: 048
  5. FUROSEMIDE [Concomitant]
     Dosage: 80 mg
     Route: 048
  6. SIMVASTATIN [Concomitant]
     Dosage: 10 mg
     Route: 048
  7. THYROXINE SODIUM [Concomitant]
     Dosage: 50 mcg
     Route: 048
  8. GLIMEPIRIDE [Concomitant]
     Dosage: 1 mg
     Route: 048
  9. INSULIN GLARINGE [Concomitant]
     Dosage: 10 U
     Route: 058
  10. ALLOPURINOL [Concomitant]
     Dosage: 300 mg
     Route: 048
  11. OMEPRAZOLE [Concomitant]
     Dosage: 20 mg
     Route: 048
  12. IPRATROPIUM BROMIDE [Concomitant]
     Dosage: MI

REACTIONS (11)
  - Subarachnoid haemorrhage [Recovered/Resolved]
  - Fall [Not Recovered/Not Resolved]
  - Prothrombin time prolonged [Unknown]
  - Hyponatraemia [Unknown]
  - Generalised oedema [Unknown]
  - Pulmonary hypertension [Unknown]
  - Pulmonary congestion [Unknown]
  - Addison^s disease [Unknown]
  - Infection [Unknown]
  - Renal failure acute [Unknown]
  - Urinary tract infection [Unknown]
